FAERS Safety Report 21135814 (Version 7)
Quarter: 2022Q3

REPORT INFORMATION
  Report Type: Spontaneous
  Country: US (occurrence: US)
  Receive Date: 20220727
  Receipt Date: 20220927
  Transmission Date: 20221027
  Serious: No
  Sender: FDA-Public Use
  Company Number: US-DSJP-DSU-2022-125772AA

PATIENT
  Age: 26 Year
  Sex: Female
  Weight: 71.4 kg

DRUGS (2)
  1. TURALIO [Suspect]
     Active Substance: PEXIDARTINIB HYDROCHLORIDE
     Indication: Giant cell tumour of tendon sheath
     Dosage: 400 MG, BID
     Route: 048
     Dates: start: 20220526, end: 20220718
  2. TURALIO [Suspect]
     Active Substance: PEXIDARTINIB HYDROCHLORIDE
     Indication: Synovitis

REACTIONS (10)
  - Drug ineffective [Unknown]
  - Adverse drug reaction [Recovered/Resolved]
  - Pain [Unknown]
  - Sensitive skin [Unknown]
  - Treatment noncompliance [Unknown]
  - Pruritus [Recovered/Resolved]
  - Puncture site discharge [Unknown]
  - Skin discolouration [Recovered/Resolved]
  - Contusion [Recovered/Resolved]
  - Burning sensation [Recovered/Resolved]

NARRATIVE: CASE EVENT DATE: 20220527
